FAERS Safety Report 18191887 (Version 11)
Quarter: 2025Q2

REPORT INFORMATION
  Report Type: Spontaneous
  Country: PK (occurrence: PK)
  Receive Date: 20200825
  Receipt Date: 20250507
  Transmission Date: 20250716
  Serious: Yes (Other)
  Sender: AMGEN
  Company Number: PK-PFIZER INC-2020002038

PATIENT
  Age: 48 Year
  Sex: Male
  Weight: 78 kg

DRUGS (20)
  1. ENBREL [Suspect]
     Active Substance: ETANERCEPT
     Indication: Ankylosing spondylitis
     Dosage: 50 MG, WEEKLY
     Route: 058
     Dates: start: 201912
  2. ENBREL [Suspect]
     Active Substance: ETANERCEPT
     Indication: Psoriatic arthropathy
     Route: 065
     Dates: start: 20200101
  3. ENBREL [Suspect]
     Active Substance: ETANERCEPT
     Dosage: 50 MG, EVERY 3 WEEKS
     Route: 065
     Dates: start: 2020
  4. ENBREL [Suspect]
     Active Substance: ETANERCEPT
     Dosage: 50 MG, MONTHLY
     Route: 058
  5. ENBREL [Suspect]
     Active Substance: ETANERCEPT
     Dosage: 50 MG, AFTER EVERY 3 WEEKS
     Route: 058
  6. ENBREL [Suspect]
     Active Substance: ETANERCEPT
     Dosage: 50 MG, WEEKLY (EVERY WEEK NEXT 2 MONTHS)
     Route: 065
  7. ENBREL [Suspect]
     Active Substance: ETANERCEPT
     Dosage: 50 MG, WEEKLY
     Route: 058
     Dates: start: 202101
  8. ENBREL [Suspect]
     Active Substance: ETANERCEPT
     Route: 065
  9. ENBREL [Suspect]
     Active Substance: ETANERCEPT
     Route: 058
     Dates: start: 20220707
  10. ENBREL [Suspect]
     Active Substance: ETANERCEPT
     Route: 058
  11. ARCOX [Concomitant]
     Dosage: 60 MG, 1X/DAY (AFTER MEAL) FOR ONE MONTH, THEN AS NEEDED.
  12. COSENTYX [Concomitant]
     Active Substance: SECUKINUMAB
     Route: 058
     Dates: start: 201903
  13. Dolgina [Concomitant]
     Dosage: 1 DF, 1X/DAY (TAKE 1 TABLET ONCE A DAY)
  14. Sunny d [Concomitant]
     Dosage: 1 DF, MONTHLY FOR 4 MONTHS (200,000)
  15. Sunny d [Concomitant]
  16. PANADOL [Concomitant]
     Active Substance: ACETAMINOPHEN
     Indication: Pain
     Dosage: 1000 MG, 1X/DAY (2 X TABLET, ONCE A DAY, AFTER MEAL, WHEN REQUIRED AS NEEDED)
  17. Nuberol [Concomitant]
  18. DICLOFENAC SODIUM [Concomitant]
     Active Substance: DICLOFENAC SODIUM
     Dosage: UNK, 3X/DAY (EMULGEL 20)
  19. DEPO-MEDROL [Concomitant]
     Active Substance: METHYLPREDNISOLONE ACETATE
  20. Qalsan d [Concomitant]

REACTIONS (21)
  - Iridocyclitis [Unknown]
  - Ankylosing spondylitis [Unknown]
  - Psoriasis [Unknown]
  - Dry mouth [Unknown]
  - Neck pain [Unknown]
  - Back pain [Unknown]
  - Musculoskeletal stiffness [Unknown]
  - Blood triglycerides abnormal [Unknown]
  - Pyrexia [Unknown]
  - Arthralgia [Unknown]
  - Blood triglycerides increased [Unknown]
  - High density lipoprotein decreased [Unknown]
  - Very low density lipoprotein increased [Unknown]
  - Platelet count increased [Unknown]
  - Blood uric acid decreased [Unknown]
  - Rotator cuff syndrome [Unknown]
  - Off label use [Unknown]
  - C-reactive protein increased [Unknown]
  - Vertigo [Recovered/Resolved]
  - Influenza [Recovered/Resolved]
  - Intentional product misuse [Unknown]

NARRATIVE: CASE EVENT DATE: 20200101
